FAERS Safety Report 8816059 (Version 1)
Quarter: 2012Q4

REPORT INFORMATION
  Report Type: 
  Country: CN (occurrence: CN)
  Receive Date: 20120928
  Receipt Date: 20120928
  Transmission Date: 20130627
  Serious: Yes (Other)
  Sender: FDA-Public Use
  Company Number: CN-SANOFI-AVENTIS-2012SA069274

PATIENT

DRUGS (2)
  1. LANTUS SOLOSTAR [Suspect]
     Indication: TYPE 2 DIABETES MELLITUS
     Dosage: Dose: 16- 20 IU
     Route: 058
     Dates: start: 2010
  2. SOLOSTAR [Suspect]
     Indication: DEVICE THERAPY
     Dates: start: 2010

REACTIONS (1)
  - Neoplasm [Not Recovered/Not Resolved]
